FAERS Safety Report 7428624-8 (Version None)
Quarter: 2011Q2

REPORT INFORMATION
  Report Type: 
  Country: None (occurrence: None)
  Receive Date: 20110415
  Receipt Date: 20110415
  Transmission Date: 20111010
  Serious: Yes (Hospitalization)
  Sender: FDA-Public Use
  Company Number: None

PATIENT
  Age: 66 Year
  Sex: Male

DRUGS (1)
  1. HYDROCHLOROTHIAZIDE [Suspect]
     Indication: HYPERTENSION
     Dates: start: 20011217, end: 20101223

REACTIONS (5)
  - RASH [None]
  - NAUSEA [None]
  - VOMITING [None]
  - HEADACHE [None]
  - PYREXIA [None]
